FAERS Safety Report 9298752 (Version 2)
Quarter: 2013Q3

REPORT INFORMATION
  Report Type: Spontaneous
  Country: US (occurrence: US)
  Receive Date: 20130520
  Receipt Date: 20130717
  Transmission Date: 20140515
  Serious: Yes (Other)
  Sender: FDA-Public Use
  Company Number: US-GLAXOSMITHKLINE-A1023874A

PATIENT
  Age: 60 Year
  Sex: Female
  Weight: 65.9 kg

DRUGS (12)
  1. TYKERB [Suspect]
     Indication: BREAST CANCER
     Dosage: 1250MG PER DAY
     Route: 048
  2. MYRBETRIQ [Concomitant]
  3. POTASSIUM [Concomitant]
  4. FERROUS SULFATE [Concomitant]
  5. AMOXICILLIN [Concomitant]
  6. PREVACID [Concomitant]
  7. LAXATIVE [Concomitant]
  8. DILAUDID [Concomitant]
  9. VITAMIN D [Concomitant]
  10. ENOXAPARIN [Concomitant]
  11. GELNIQUE [Concomitant]
  12. VEGETABLE LAXATIVE [Concomitant]

REACTIONS (7)
  - Breast cancer metastatic [Unknown]
  - Knee arthroplasty [Unknown]
  - Herpes zoster [Unknown]
  - Local swelling [Unknown]
  - Paraesthesia [Unknown]
  - Fatigue [Unknown]
  - Alopecia [Unknown]
